FAERS Safety Report 5647591-0 (Version None)
Quarter: 2008Q1

REPORT INFORMATION
  Report Type: 
  Country: None (occurrence: None)
  Receive Date: 20080303
  Receipt Date: 20080221
  Transmission Date: 20080703
  Serious: Yes (Other)
  Sender: FDA-Public Use
  Company Number: US-PFIZER INC-2008016289

PATIENT
  Sex: Female
  Weight: 72.6 kg

DRUGS (4)
  1. GEODON [Suspect]
     Indication: DELUSION
  2. GEODON [Suspect]
     Indication: AFFECTIVE DISORDER
  3. GEODON [Suspect]
     Indication: ILLUSION
  4. COMBIVIR [Concomitant]

REACTIONS (10)
  - AGITATION [None]
  - ANXIETY [None]
  - BLOOD PRESSURE DIASTOLIC INCREASED [None]
  - DYSKINESIA [None]
  - EXTRAPYRAMIDAL DISORDER [None]
  - RESTLESS LEGS SYNDROME [None]
  - RESTLESSNESS [None]
  - SELF-INJURIOUS IDEATION [None]
  - SUICIDAL IDEATION [None]
  - THINKING ABNORMAL [None]
